FAERS Safety Report 18209570 (Version 4)
Quarter: 2021Q1

REPORT INFORMATION
  Report Type: Spontaneous
  Country: US (occurrence: US)
  Receive Date: 20200828
  Receipt Date: 20210111
  Transmission Date: 20210419
  Serious: No
  Sender: FDA-Public Use
  Company Number: US-STRONGBRIDGE BIOPHARMA-2020-STR-000208

PATIENT
  Sex: Female

DRUGS (2)
  1. KEVEYIS [Suspect]
     Active Substance: DICHLORPHENAMIDE
     Indication: FAMILIAL PERIODIC PARALYSIS
     Dosage: 75 MG, BID
     Route: 048
  2. KEVEYIS [Suspect]
     Active Substance: DICHLORPHENAMIDE
     Dosage: 75 MG, BID
     Route: 048

REACTIONS (9)
  - Eye pain [Unknown]
  - Headache [Unknown]
  - Wrong technique in product usage process [Unknown]
  - Nausea [Unknown]
  - Inner ear disorder [Unknown]
  - Vertigo [Not Recovered/Not Resolved]
  - Osteoporosis [Unknown]
  - Memory impairment [Unknown]
  - Vertigo [Unknown]
